FAERS Safety Report 16760668 (Version 1)
Quarter: 2019Q3

REPORT INFORMATION
  Report Type: Spontaneous
  Country: CN (occurrence: CN)
  Receive Date: 20190830
  Receipt Date: 20190830
  Transmission Date: 20191005
  Serious: Yes (Other)
  Sender: FDA-Public Use
  Company Number: CN-CELGENEUS-CHN-20190809102

PATIENT
  Age: 43 Year
  Sex: Male
  Weight: 43 kg

DRUGS (6)
  1. PRED [Concomitant]
     Active Substance: PREDNISONE
     Indication: PRODUCT USED FOR UNKNOWN INDICATION
     Dosage: 5MG/120
     Route: 065
     Dates: start: 20190802, end: 20190817
  2. ENTECAVIR. [Concomitant]
     Active Substance: ENTECAVIR
     Indication: PRODUCT USED FOR UNKNOWN INDICATION
     Dosage: 2/56
     Route: 065
     Dates: start: 20190806, end: 20190817
  3. CAFFEIC ACID TABLETS [Concomitant]
     Indication: PRODUCT USED FOR UNKNOWN INDICATION
     Dosage: 100/112MG
     Route: 065
     Dates: start: 20190806, end: 20190817
  4. REVLIMID [Suspect]
     Active Substance: LENALIDOMIDE
     Indication: HODGKIN^S DISEASE
     Dosage: 25 MILLIGRAM
     Route: 048
     Dates: start: 20190802, end: 20190816
  5. RITUXAN [Concomitant]
     Active Substance: RITUXIMAB
     Indication: PRODUCT USED FOR UNKNOWN INDICATION
     Route: 065
     Dates: start: 20190711, end: 20190817
  6. PIDOTIMOD [Concomitant]
     Active Substance: PIDOTIMOD
     Indication: PRODUCT USED FOR UNKNOWN INDICATION
     Dosage: 500/14 UG
     Route: 065
     Dates: start: 20190806, end: 20190817

REACTIONS (2)
  - Hydrothorax [Unknown]
  - Neoplasm [Unknown]

NARRATIVE: CASE EVENT DATE: 20190817
